FAERS Safety Report 17096023 (Version 2)
Quarter: 2020Q3

REPORT INFORMATION
  Report Type: Spontaneous
  Country: US (occurrence: US)
  Receive Date: 20191202
  Receipt Date: 20200827
  Transmission Date: 20201102
  Serious: Yes (Hospitalization)
  Sender: FDA-Public Use
  Company Number: US-BIOGEN-2019BI00808631

PATIENT
  Sex: Female

DRUGS (1)
  1. TECFIDERA [Suspect]
     Active Substance: DIMETHYL FUMARATE
     Indication: MULTIPLE SCLEROSIS
     Route: 065
     Dates: end: 201908

REACTIONS (7)
  - Ulcer [Unknown]
  - Impaired gastric emptying [Unknown]
  - Cholelithiasis [Unknown]
  - Vomiting [Unknown]
  - Multiple sclerosis [Unknown]
  - Memory impairment [Unknown]
  - Gastric disorder [Not Recovered/Not Resolved]
